FAERS Safety Report 9370198 (Version 1)
Quarter: 2013Q2

REPORT INFORMATION
  Report Type: Spontaneous
  Country: US (occurrence: None)
  Receive Date: 20130624
  Receipt Date: 20130624
  Transmission Date: 20140414
  Serious: Yes (Other)
  Sender: FDA-Public Use
  Company Number: 20130307

PATIENT
  Age: 16 Month
  Sex: Male

DRUGS (1)
  1. VASOPRESSIN [Suspect]
     Indication: SEPTIC SHOCK
     Dosage: 0.06 U/KG/ HR

REACTIONS (2)
  - Hyponatraemia [None]
  - Urine output decreased [None]
